FAERS Safety Report 11577279 (Version 1)
Quarter: 2015Q3

REPORT INFORMATION
  Report Type: Spontaneous
  Country: US (occurrence: US)
  Receive Date: 20150916
  Receipt Date: 20150916
  Transmission Date: 20151125
  Serious: No
  Sender: FDA-Public Use
  Company Number: US-ELI_LILLY_AND_COMPANY-US201306002176

PATIENT

DRUGS (2)
  1. VICTOZA [Suspect]
     Active Substance: LIRAGLUTIDE
     Dosage: UNK
     Dates: start: 20130502, end: 201305
  2. HUMALOG [Suspect]
     Active Substance: INSULIN LISPRO
     Dosage: UNK
     Dates: start: 1998

REACTIONS (7)
  - Vomiting [Unknown]
  - Nausea [Unknown]
  - Somnolence [Unknown]
  - Dehydration [Unknown]
  - Muscle spasms [Unknown]
  - Abdominal pain upper [Unknown]
  - Diarrhoea [Unknown]

NARRATIVE: CASE EVENT DATE: 20130505
